FAERS Safety Report 24585484 (Version 1)
Quarter: 2024Q4

REPORT INFORMATION
  Report Type: Spontaneous
  Country: US (occurrence: US)
  Receive Date: 20241106
  Receipt Date: 20241106
  Transmission Date: 20250115
  Serious: Yes (Death, Hospitalization, Other)
  Sender: AMGEN
  Company Number: US-AMGEN-USASP2024216027

PATIENT

DRUGS (1)
  1. CINACALCET HYDROCHLORIDE [Suspect]
     Active Substance: CINACALCET HYDROCHLORIDE
     Indication: Calciphylaxis
     Dosage: UNK
     Route: 065

REACTIONS (7)
  - Death [Fatal]
  - Unevaluable event [Unknown]
  - Calciphylaxis [Unknown]
  - Sepsis [Unknown]
  - Wound infection [Unknown]
  - Amputation [Unknown]
  - Off label use [Unknown]
